FAERS Safety Report 9018939 (Version 2)
Quarter: 2013Q1

REPORT INFORMATION
  Report Type: Spontaneous
  Country: US (occurrence: US)
  Receive Date: 20130118
  Receipt Date: 20130125
  Transmission Date: 20140127
  Serious: Yes (Other)
  Sender: FDA-Public Use
  Company Number: CHPA2013US000805

PATIENT
  Age: 72 Year
  Sex: Female

DRUGS (8)
  1. EXCEDRIN EXTRA STRENGTH [Suspect]
     Indication: MIGRAINE
     Dosage: 1 CAPLET AS NEEDED
     Route: 048
     Dates: start: 1992
  2. EXCEDRIN EXTRA STRENGTH [Suspect]
     Indication: MIGRAINE
     Dosage: 1 GELTAB AS NEEDED
     Route: 048
     Dates: start: 1992
  3. EXCEDRIN MIGRAINE [Suspect]
     Indication: RHEUMATOID ARTHRITIS
     Dosage: 1 CAPLET AS NEEDED
     Route: 048
     Dates: start: 1998
  4. ZESTRIL [Suspect]
     Indication: HYPERTENSION
     Dosage: UNK, UNK
     Dates: end: 2009
  5. ANTIHYPERTENSIVE DRUGS [Concomitant]
     Indication: HYPERTENSION
  6. METOPROLOL [Concomitant]
     Indication: HYPERTENSION
  7. AVAPRO [Concomitant]
     Indication: HYPERTENSION
  8. CLONIDINE [Concomitant]
     Indication: HYPERTENSION

REACTIONS (6)
  - Dyspnoea [Recovered/Resolved]
  - Erythema [Recovered/Resolved]
  - Swelling face [Recovered/Resolved]
  - Throat tightness [Recovered/Resolved]
  - Off label use [Unknown]
  - Incorrect dose administered [Unknown]
